FAERS Safety Report 8358045-5 (Version None)
Quarter: 2012Q2

REPORT INFORMATION
  Report Type: 
  Country: None (occurrence: None)
  Receive Date: 20120514
  Receipt Date: 20120503
  Transmission Date: 20120825
  Serious: Yes (Death, Hospitalization)
  Sender: FDA-Public Use
  Company Number: FR-BRISTOL-MYERS SQUIBB COMPANY-16571481

PATIENT
  Age: 73 Year
  Sex: Female

DRUGS (8)
  1. NEXIUM [Concomitant]
  2. CYCLOPHOSPHAMIDE [Suspect]
     Indication: BREAST CANCER METASTATIC
     Dosage: 2 TABLETS DAILY, ADMINISTERED EVERY 2 WEEKS
     Dates: start: 20110801
  3. CRESTOR [Concomitant]
  4. CLASTOBAN [Suspect]
     Dates: start: 20081101
  5. APROVEL [Concomitant]
  6. PLAVIX [Concomitant]
     Dosage: FILM-COATED TABLET (CLOPIDOGREL
  7. TAXOL [Suspect]
     Indication: BREAST CANCER METASTATIC
     Dosage: TOTAL OF 6 COURSES
     Route: 042
     Dates: start: 20110201
  8. NAVELBINE [Suspect]
     Indication: BREAST CANCER METASTATIC
     Dates: start: 20111001, end: 20111101

REACTIONS (3)
  - ANURIA [None]
  - RENAL FAILURE ACUTE [None]
  - LIVER INJURY [None]
